FAERS Safety Report 20764183 (Version 1)
Quarter: 2022Q2

REPORT INFORMATION
  Report Type: Spontaneous
  Country: US (occurrence: None)
  Receive Date: 20220428
  Receipt Date: 20220428
  Transmission Date: 20220721
  Serious: No
  Sender: FDA-Public Use
  Company Number: None

PATIENT
  Age: 29 Year
  Sex: Male

DRUGS (3)
  1. DEXAMETHASONE\NEOMYCIN SULFATE\POLYMYXIN B SULFATE [Suspect]
     Active Substance: DEXAMETHASONE\NEOMYCIN SULFATE\POLYMYXIN B SULFATE
     Indication: Hordeolum
     Dosage: FREQUENCY : TWICE A DAY;?
     Route: 047
     Dates: start: 20220427
  2. ONE A DAY GUMMIES [Concomitant]
  3. APPLE CIDER GUMMIES [Concomitant]

REACTIONS (7)
  - Rash [None]
  - Skin irritation [None]
  - Headache [None]
  - Pyrexia [None]
  - Throat tightness [None]
  - Eye swelling [None]
  - Ocular hyperaemia [None]

NARRATIVE: CASE EVENT DATE: 20220427
